FAERS Safety Report 15447744 (Version 1)
Quarter: 2018Q3

REPORT INFORMATION
  Report Type: Spontaneous
  Country: US (occurrence: US)
  Receive Date: 20180928
  Receipt Date: 20180928
  Transmission Date: 20181010
  Serious: No
  Sender: FDA-Public Use
  Company Number: US-AMGEN-USASP2018112240

PATIENT
  Age: 68 Year
  Sex: Female
  Weight: 45.81 kg

DRUGS (22)
  1. BUTALBITAL COMPOUND [Concomitant]
     Active Substance: ASPIRIN\BUTALBITAL\CAFFEINE
     Dosage: 325 MG?50 MG?40 MG, Q6H
  2. PROBIOTIC [Concomitant]
     Active Substance: PROBIOTICS NOS
     Dosage: 1 CAPSULE, QD
     Route: 048
  3. MEGARED EXTRA STRENGTH [Concomitant]
     Dosage: UNK, QD
  4. MAGNESIUM COMPLEX [Concomitant]
     Dosage: UNK, QOD
     Route: 048
  5. COENZYME Q10 [Concomitant]
     Active Substance: UBIDECARENONE
     Dosage: 100 MG, QD
     Route: 048
  6. VITAMIN B12 [Concomitant]
     Active Substance: CYANOCOBALAMIN
     Dosage: 2500 MUG, QD
     Route: 060
     Dates: start: 20160404
  7. VITAMIN D3 [Concomitant]
     Active Substance: CHOLECALCIFEROL
     Dosage: 5000 IU, 5 TIMES A WEEK
     Route: 048
  8. ROPINIROLE HYDROCHLORIDE. [Concomitant]
     Active Substance: ROPINIROLE HYDROCHLORIDE
     Dosage: 0.5 MG, QHS
     Route: 048
  9. CALCIUM 600+VIT D [Concomitant]
     Active Substance: CALCIUM\ERGOCALCIFEROL
     Dosage: 600 MG?200 UNITS, TID
     Route: 048
  10. VITAMIN B6 [Concomitant]
     Active Substance: PYRIDOXINE HYDROCHLORIDE
     Dosage: 200 MG, QD
     Route: 048
  11. VALACYCLOVIR HYDROCHLORIDE. [Concomitant]
     Active Substance: VALACYCLOVIR HYDROCHLORIDE
     Dosage: 500 MG, QD
     Route: 048
     Dates: start: 20180510
  12. TURMERIC [Concomitant]
     Active Substance: HERBALS\TURMERIC
     Dosage: UNK UNK, QD
     Route: 048
  13. FOLIC ACID. [Concomitant]
     Active Substance: FOLIC ACID
     Dosage: 0.4 MG, QD
     Route: 048
     Dates: start: 20160404
  14. PROAIR HFA [Concomitant]
     Active Substance: ALBUTEROL SULFATE
     Dosage: 90 MCG, QID
     Dates: start: 20170802
  15. PROLIA [Suspect]
     Active Substance: DENOSUMAB
     Indication: OSTEOPOROSIS POSTMENOPAUSAL
     Dosage: 60 MG/ML, Q6MO
     Route: 058
     Dates: start: 20170914
  16. MILK THISTLE [Concomitant]
     Active Substance: DIETARY SUPPLEMENT\HERBALS\MILK THISTLE
     Dosage: 240 MG, QD
     Route: 048
  17. VITAMIN C [Concomitant]
     Active Substance: ASCORBIC ACID
     Dosage: 500 MG, QD
     Route: 048
  18. GARLIC. [Concomitant]
     Active Substance: GARLIC
     Dosage: 1000 MG, UNK
  19. SYMBICORT [Concomitant]
     Active Substance: BUDESONIDE\FORMOTEROL FUMARATE DIHYDRATE
     Dosage: 160 MUG?4.5 AEROSOL, TWO PUFFS BID
  20. ALPRAZOLAM. [Concomitant]
     Active Substance: ALPRAZOLAM
     Dosage: 0.25 MG, TID
     Route: 048
     Dates: start: 20160818
  21. VITAMIN B1 [Concomitant]
     Active Substance: THIAMINE HYDROCHLORIDE
     Dosage: 250 MG, QD
     Route: 048
  22. VITAMIN E [Concomitant]
     Active Substance: .ALPHA.-TOCOPHEROL
     Dosage: 400 IU, QD
     Route: 048

REACTIONS (1)
  - Suture related complication [Unknown]

NARRATIVE: CASE EVENT DATE: 2017
